FAERS Safety Report 9426622 (Version 1)
Quarter: 2013Q3

REPORT INFORMATION
  Report Type: Spontaneous
  Country: US (occurrence: US)
  Receive Date: 20130730
  Receipt Date: 20130730
  Transmission Date: 20140515
  Serious: No
  Sender: FDA-Public Use
  Company Number: US-PFIZER INC-2013219833

PATIENT
  Age: 77 Year
  Sex: Female
  Weight: 74.83 kg

DRUGS (2)
  1. CELEBREX [Suspect]
     Indication: ARTHRITIS
     Dosage: UNK, 1X/DAY
     Route: 048
     Dates: start: 201305, end: 20130601
  2. LOSARTAN [Concomitant]
     Indication: HYPERTENSION
     Dosage: UNK

REACTIONS (6)
  - Dysgeusia [Unknown]
  - Parosmia [Unknown]
  - Anosmia [Unknown]
  - Drug hypersensitivity [Unknown]
  - Feeling abnormal [Unknown]
  - Screaming [Unknown]
